FAERS Safety Report 4878845-3 (Version None)
Quarter: 2006Q1

REPORT INFORMATION
  Report Type: 
  Country: None (occurrence: None)
  Receive Date: 20060112
  Receipt Date: 20060102
  Transmission Date: 20060701
  Serious: Yes (Hospitalization)
  Sender: FDA-Public Use
  Company Number: SE-GLAXOSMITHKLINE-B0405505A

PATIENT
  Age: 76 Year
  Sex: Female

DRUGS (13)
  1. VALTREX [Suspect]
     Indication: HERPES ZOSTER
     Dosage: 500MG PER DAY
     Route: 048
     Dates: start: 20051027, end: 20051101
  2. RENAGEL [Concomitant]
  3. LIPITOR [Concomitant]
  4. MADOPARK [Concomitant]
  5. ATACAND [Concomitant]
  6. PLENDIL [Concomitant]
  7. LANSOPRAZOLE [Concomitant]
  8. ACETAMINOPHEN [Concomitant]
  9. RESONIUM [Concomitant]
  10. NATRIUMBIKARBONAT [Concomitant]
  11. SELOKEN [Concomitant]
  12. FUROSEMIDE [Concomitant]
  13. TRIOBE [Concomitant]

REACTIONS (7)
  - CEREBROVASCULAR ACCIDENT [None]
  - ENCEPHALITIS [None]
  - HALLUCINATION [None]
  - ILLUSION [None]
  - MENTAL DISORDER [None]
  - SPEECH DISORDER [None]
  - THINKING ABNORMAL [None]
